FAERS Safety Report 18480685 (Version 1)
Quarter: 2020Q4

REPORT INFORMATION
  Report Type: Spontaneous
  Country: US (occurrence: US)
  Receive Date: 20201109
  Receipt Date: 20201109
  Transmission Date: 20210114
  Serious: Yes (Other)
  Sender: FDA-Public Use
  Company Number: US-PRINSTON PHARMACEUTICAL INC.-2020PRN00361

PATIENT
  Age: 68 Year
  Sex: Female

DRUGS (5)
  1. UNSPECIFIED MEDICATIONS [Concomitant]
     Active Substance: UNSPECIFIED INGREDIENT
  2. QUINAPRIL. [Suspect]
     Active Substance: QUINAPRIL
     Dosage: 20 MG, 1X/DAY
     Route: 048
     Dates: start: 202006, end: 2020
  3. QUINAPRIL. [Suspect]
     Active Substance: QUINAPRIL
     Indication: HYPERTENSION
     Dosage: 20 MG, 1X/DAY
     Route: 048
     Dates: start: 202006
  4. CARVEDILOL. [Concomitant]
     Active Substance: CARVEDILOL
     Dosage: 25 MG, 2X/DAY
  5. QUINAPRIL. [Suspect]
     Active Substance: QUINAPRIL
     Indication: HYPERTENSION
     Dosage: 40 MG, 1X/DAY
     Route: 048
     Dates: end: 2020

REACTIONS (11)
  - Rotator cuff syndrome [Unknown]
  - Arthralgia [Unknown]
  - Hypersensitivity [Not Recovered/Not Resolved]
  - Road traffic accident [Unknown]
  - Accident at work [Unknown]
  - Neck pain [Unknown]
  - Arthropathy [Unknown]
  - Hypotension [Recovered/Resolved]
  - Meniscus injury [Unknown]
  - Osteoarthritis [Not Recovered/Not Resolved]
  - Product physical consistency issue [Not Recovered/Not Resolved]

NARRATIVE: CASE EVENT DATE: 20191026
